FAERS Safety Report 14951232 (Version 3)
Quarter: 2018Q3

REPORT INFORMATION
  Report Type: Spontaneous
  Country: US (occurrence: US)
  Receive Date: 20180530
  Receipt Date: 20180914
  Transmission Date: 20181010
  Serious: No
  Sender: FDA-Public Use
  Company Number: US-009507513-1805USA000178

PATIENT
  Age: 72 Year
  Sex: Male

DRUGS (4)
  1. ASMANEX [Suspect]
     Active Substance: MOMETASONE FUROATE
     Dosage: UNK
     Route: 055
  2. ASMANEX [Suspect]
     Active Substance: MOMETASONE FUROATE
     Dosage: UNK
  3. ASMANEX HFA [Suspect]
     Active Substance: MOMETASONE FUROATE
     Dosage: UNK
  4. ASMANEX [Suspect]
     Active Substance: MOMETASONE FUROATE
     Dosage: UNK
     Route: 055

REACTIONS (8)
  - Underdose [Unknown]
  - Drug dose omission [Unknown]
  - Dizziness [Unknown]
  - Product container issue [Unknown]
  - Accidental underdose [Unknown]
  - Circumstance or information capable of leading to medication error [Unknown]
  - Feeling abnormal [Unknown]
  - Product availability issue [Unknown]

NARRATIVE: CASE EVENT DATE: 2018
